FAERS Safety Report 9481672 (Version 1)
Quarter: 2013Q3

REPORT INFORMATION
  Report Type: Spontaneous
  Country: US (occurrence: US)
  Receive Date: 20130828
  Receipt Date: 20130828
  Transmission Date: 20140515
  Serious: Yes (Hospitalization)
  Sender: FDA-Public Use
  Company Number: US-AMGEN-KDL214024

PATIENT
  Age: 60 Year
  Sex: Female

DRUGS (2)
  1. ENBREL [Suspect]
     Indication: RHEUMATOID ARTHRITIS
     Dosage: 50 MG, QWK
     Route: 058
     Dates: start: 20061119
  2. METHOTREXATE [Concomitant]
     Dosage: 10 MG, QWK
     Dates: start: 200603

REACTIONS (3)
  - Hiatus hernia [Unknown]
  - Gastritis [Unknown]
  - Injection site reaction [Not Recovered/Not Resolved]
